FAERS Safety Report 9512110 (Version 4)
Quarter: 2013Q4

REPORT INFORMATION
  Report Type: Spontaneous
  Country: IT (occurrence: None)
  Receive Date: 20130906
  Receipt Date: 20131028
  Transmission Date: 20140711
  Serious: Yes (Other)
  Sender: FDA-Public Use
  Company Number: AUR-APL-2013-07310

PATIENT
  Age: 70 Year
  Sex: Male

DRUGS (3)
  1. RAMIPRIL [Suspect]
     Indication: HYPERTENSION
     Dosage: (2.5 MG, 1 D), ORAL
     Route: 048
     Dates: end: 20130530
  2. CONGESCOR (BISOPROLOL) [Concomitant]
  3. ACETYLSALICYLIC ACID (ACETYLSALICYLIC ACID) [Concomitant]

REACTIONS (3)
  - Angioedema [None]
  - Lip oedema [None]
  - Palatal oedema [None]
